FAERS Safety Report 7211116-9 (Version None)
Quarter: 2010Q4

REPORT INFORMATION
  Report Type: 
  Country: None (occurrence: None)
  Receive Date: 20101223
  Receipt Date: 20101215
  Transmission Date: 20110411
  Serious: Yes (Hospitalization, Other)
  Sender: FDA-Public Use
  Company Number: AXC-2010-000356

PATIENT
  Age: 48 Year
  Sex: Male

DRUGS (2)
  1. MESALAMINE [Suspect]
     Indication: COLITIS ULCERATIVE
     Dosage: 3000 MG, QD,
  2. METHYLPREDNISOLONE [Suspect]
     Indication: COLITIS ULCERATIVE

REACTIONS (5)
  - COLITIS ULCERATIVE [None]
  - CONDITION AGGRAVATED [None]
  - MUSCULAR WEAKNESS [None]
  - PARAESTHESIA [None]
  - PERIPHERAL SENSORIMOTOR NEUROPATHY [None]
